FAERS Safety Report 8544560-8 (Version None)
Quarter: 2012Q3

REPORT INFORMATION
  Report Type: 
  Country: None (occurrence: None)
  Receive Date: 20120727
  Receipt Date: 20120717
  Transmission Date: 20120928
  Serious: Yes (Hospitalization)
  Sender: FDA-Public Use
  Company Number: DE-CELGENEUS-062-21880-11051152

PATIENT
  Age: 70 Year
  Sex: Male
  Weight: 73 kg

DRUGS (4)
  1. DOXYCYCLINE [Concomitant]
     Indication: ANTI-INFECTIVE THERAPY
     Dosage: 100 MILLIGRAM
     Route: 048
     Dates: end: 20100408
  2. ASPIRIN [Concomitant]
     Indication: THROMBOSIS PROPHYLAXIS
     Route: 065
  3. VFEND [Concomitant]
     Dosage: 400 MILLIGRAM
     Route: 048
     Dates: end: 20100415
  4. REVLIMID [Suspect]
     Indication: MULTIPLE MYELOMA
     Dosage: 10 MILLIGRAM
     Route: 048
     Dates: end: 20100325

REACTIONS (3)
  - C-REACTIVE PROTEIN INCREASED [None]
  - NEUTROPENIA [None]
  - PNEUMONIA [None]
